FAERS Safety Report 9516526 (Version 2)
Quarter: 2013Q3

REPORT INFORMATION
  Report Type: Spontaneous
  Country: US (occurrence: US)
  Receive Date: 20130911
  Receipt Date: 20130927
  Transmission Date: 20140515
  Serious: No
  Sender: FDA-Public Use
  Company Number: US-009507513-1309USA004656

PATIENT
  Sex: Male

DRUGS (1)
  1. MIRALAX [Suspect]
     Indication: PARKINSON^S DISEASE
     Dosage: 3 DF, UNKNOWN
     Route: 048

REACTIONS (2)
  - Overdose [Unknown]
  - Off label use [Unknown]
